FAERS Safety Report 8509979-X (Version None)
Quarter: 2012Q3

REPORT INFORMATION
  Report Type: 
  Country: None (occurrence: None)
  Receive Date: 20120713
  Receipt Date: 20120709
  Transmission Date: 20120928
  Serious: Yes (Hospitalization)
  Sender: FDA-Public Use
  Company Number: JP-B.I. PHARMACEUTICALS,INC./RIDGEFIELD-2012-BP-12466NB

PATIENT
  Sex: Female
  Weight: 44.5 kg

DRUGS (6)
  1. YOKUKANSAN [Concomitant]
     Indication: DEMENTIA ALZHEIMER'S TYPE
     Dosage: 7.5 MG
     Route: 048
     Dates: start: 20120307, end: 20120601
  2. PRADAXA [Suspect]
     Indication: EMBOLIC STROKE
     Dosage: 150 MG
     Route: 048
     Dates: start: 20120321, end: 20120518
  3. MEMANTINE HCL [Concomitant]
     Indication: DEMENTIA ALZHEIMER'S TYPE
     Dosage: 15 MG
     Route: 048
     Dates: start: 20120307, end: 20120604
  4. AMLODIPINE BESYLATE [Concomitant]
     Indication: HYPERTENSION
     Dosage: 2.5 MG
     Route: 048
     Dates: start: 20120307, end: 20120604
  5. MAGMITT [Concomitant]
     Indication: CONSTIPATION
     Dosage: 990 MG
     Route: 048
     Dates: start: 20110713
  6. FAMOSTAGINE-D [Concomitant]
     Dosage: 10 MG
     Route: 048
     Dates: start: 20120307, end: 20120604

REACTIONS (2)
  - EMBOLIC STROKE [None]
  - DRUG EFFECT DECREASED [None]
